FAERS Safety Report 7940730-8 (Version None)
Quarter: 2011Q4

REPORT INFORMATION
  Report Type: 
  Country: None (occurrence: None)
  Receive Date: 20111128
  Receipt Date: 20111118
  Transmission Date: 20120403
  Serious: No
  Sender: FDA-Public Use
  Company Number: US-JNJFOC-20111108436

PATIENT
  Sex: Male
  Weight: 106.6 kg

DRUGS (6)
  1. FENTANYL-100 [Suspect]
     Route: 062
     Dates: start: 20100101, end: 20100101
  2. FENTANYL-100 [Suspect]
     Indication: PAIN
     Route: 062
     Dates: start: 20100801, end: 20100101
  3. PRISTIQ [Concomitant]
     Indication: DEPRESSION
     Route: 048
     Dates: start: 20080101
  4. FENTANYL-100 [Suspect]
     Route: 062
     Dates: start: 20100101, end: 20100101
  5. DURAGESIC-100 [Suspect]
     Indication: PAIN
     Route: 062
     Dates: start: 20110801
  6. AMBIEN [Concomitant]
     Indication: SLEEP DISORDER
     Route: 048
     Dates: start: 20080101

REACTIONS (6)
  - PRODUCT QUALITY ISSUE [None]
  - DRUG INEFFECTIVE [None]
  - HYPERHIDROSIS [None]
  - WRONG TECHNIQUE IN DRUG USAGE PROCESS [None]
  - DRUG EFFECT INCREASED [None]
  - THERAPEUTIC RESPONSE DECREASED [None]
